FAERS Safety Report 14551139 (Version 1)
Quarter: 2018Q1

REPORT INFORMATION
  Report Type: Spontaneous
  Country: US (occurrence: US)
  Receive Date: 20180220
  Receipt Date: 20180220
  Transmission Date: 20180509
  Serious: No
  Sender: FDA-Public Use
  Company Number: US-TEVA-749478ACC

PATIENT
  Sex: Female

DRUGS (1)
  1. PREDNISONE. [Suspect]
     Active Substance: PREDNISONE
     Indication: PARAESTHESIA
     Route: 042

REACTIONS (6)
  - Inadequate diet [Unknown]
  - Weight increased [Unknown]
  - Decreased activity [Unknown]
  - Psychiatric symptom [Unknown]
  - Feeling abnormal [Unknown]
  - Crying [Unknown]
